FAERS Safety Report 9928397 (Version 1)
Quarter: 2014Q1

REPORT INFORMATION
  Report Type: Spontaneous
  Country: US (occurrence: None)
  Receive Date: 20140226
  Receipt Date: 20140226
  Transmission Date: 20141002
  Serious: No
  Sender: FDA-Public Use
  Company Number: None

PATIENT
  Age: 28 Year
  Sex: Female
  Weight: 58.06 kg

DRUGS (1)
  1. MINOCYCLINE [Suspect]
     Indication: RASH
     Route: 048

REACTIONS (2)
  - Chest discomfort [None]
  - Dizziness [None]
